APPROVED DRUG PRODUCT: NIFEDIPINE
Active Ingredient: NIFEDIPINE
Strength: 20MG
Dosage Form/Route: CAPSULE;ORAL
Application: A073421 | Product #001
Applicant: CHASE LABORATORIES INC
Approved: Jun 19, 1991 | RLD: No | RS: No | Type: DISCN